FAERS Safety Report 7213654-1 (Version None)
Quarter: 2011Q1

REPORT INFORMATION
  Report Type: 
  Country: None (occurrence: None)
  Receive Date: 20110106
  Receipt Date: 20101216
  Transmission Date: 20110831
  Serious: No
  Sender: FDA-Public Use
  Company Number: US-B.I. PHARMACEUTICALS,INC./RIDGEFIELD-2010-BP-14840BP

PATIENT
  Sex: Female

DRUGS (5)
  1. PRADAXA [Suspect]
     Indication: ATRIAL FIBRILLATION
     Dosage: 300 MG
     Route: 048
     Dates: start: 20101117, end: 20101122
  2. VESICARE [Concomitant]
     Indication: HYPERTONIC BLADDER
  3. LABETALOL HCL [Concomitant]
     Indication: HYPERTENSION
  4. EVISTA [Concomitant]
     Indication: OSTEOPOROSIS
  5. OXYBUTIN [Concomitant]
     Indication: BLADDER DISORDER

REACTIONS (1)
  - DYSPHAGIA [None]
